FAERS Safety Report 14914870 (Version 1)
Quarter: 2018Q2

REPORT INFORMATION
  Report Type: Spontaneous
  Country: TH (occurrence: TH)
  Receive Date: 20180518
  Receipt Date: 20180518
  Transmission Date: 20180711
  Serious: Yes (Death, Hospitalization)
  Sender: FDA-Public Use
  Company Number: TH-IMPAX LABORATORIES, INC-2018-IPXL-01624

PATIENT
  Age: 69 Year
  Sex: Female

DRUGS (4)
  1. CARBIDOPA-LEVODOPA ER [Suspect]
     Active Substance: CARBIDOPA\LEVODOPA
     Dosage: 100 MG MORNING, 24 MG/HR FOR 13 HOURS/DAY (CONTINOUS DOSE)
     Route: 065
  2. SODIUM CHLORIDE. [Concomitant]
     Active Substance: SODIUM CHLORIDE
     Indication: PRODUCT USED FOR UNKNOWN INDICATION
     Dosage: 900 MG, DAILY
     Route: 065
  3. CARBIDOPA-LEVODOPA ER [Suspect]
     Active Substance: CARBIDOPA\LEVODOPA
     Indication: PARKINSON^S DISEASE
     Dosage: UNK
     Route: 065
  4. CARBIDOPA-LEVODOPA ER [Suspect]
     Active Substance: CARBIDOPA\LEVODOPA
     Dosage: 140 MG MORNING, 24 MG/HR FOR 13 HOURS/DAY (CONTINOUS DOSE)
     Route: 065
     Dates: start: 2010

REACTIONS (11)
  - Asphyxia [Fatal]
  - Fall [Unknown]
  - Bradykinesia [Unknown]
  - On and off phenomenon [Unknown]
  - Hallucination, visual [Unknown]
  - Hypokinesia [Fatal]
  - Orthostatic hypotension [Unknown]
  - Muscle rigidity [Unknown]
  - Dyskinesia [Unknown]
  - Jaw fracture [Unknown]
  - Therapeutic response shortened [Unknown]
